FAERS Safety Report 12837648 (Version 1)
Quarter: 2016Q4

REPORT INFORMATION
  Report Type: Spontaneous
  Country: US (occurrence: US)
  Receive Date: 20161012
  Receipt Date: 20161012
  Transmission Date: 20170207
  Serious: No
  Sender: FDA-Public Use
  Company Number: US-ASTRAZENECA-2016SF00881

PATIENT
  Sex: Female

DRUGS (1)
  1. LYNPARZA [Suspect]
     Active Substance: OLAPARIB
     Dosage: TWO TIMES A DAY
     Route: 048

REACTIONS (3)
  - Abdominal pain upper [Unknown]
  - Product difficult to swallow [Unknown]
  - Nausea [Unknown]
